FAERS Safety Report 4809771-3 (Version None)
Quarter: 2005Q4

REPORT INFORMATION
  Report Type: 
  Country: None (occurrence: None)
  Receive Date: 20051024
  Receipt Date: 20051011
  Transmission Date: 20060501
  Serious: Yes (Hospitalization, Other)
  Sender: FDA-Public Use
  Company Number: 2005138152

PATIENT
  Age: 33 Year
  Sex: Male
  Weight: 86.1834 kg

DRUGS (8)
  1. XANAX [Suspect]
     Indication: AGORAPHOBIA
     Dosage: (1 MG, 4 TO 12 TIMES DAILY), ORAL
     Route: 048
     Dates: start: 19850101
  2. XANAX [Suspect]
     Indication: PANIC ATTACK
     Dosage: (1 MG, 4 TO 12 TIMES DAILY), ORAL
     Route: 048
     Dates: start: 19850101
  3. CIPRO [Concomitant]
  4. FLAGYL [Concomitant]
  5. ANTIBIOTICS (ANTIBIOTICS) [Concomitant]
  6. PRILOSEC [Concomitant]
  7. NEXIUM [Concomitant]
  8. ZANTAC [Concomitant]

REACTIONS (20)
  - ABDOMINAL DISCOMFORT [None]
  - ABDOMINAL DISTENSION [None]
  - AMNESIA [None]
  - ANOREXIA [None]
  - CATARACT [None]
  - CONSTIPATION [None]
  - DIARRHOEA [None]
  - DIVERTICULITIS [None]
  - GASTROINTESTINAL PAIN [None]
  - HYPERSENSITIVITY [None]
  - INTERVERTEBRAL DISC PROTRUSION [None]
  - LETHARGY [None]
  - MUSCLE SPASMS [None]
  - NAUSEA [None]
  - PAIN [None]
  - SCIATICA [None]
  - SPINAL FRACTURE [None]
  - TINNITUS [None]
  - WEIGHT INCREASED [None]
  - WHITE BLOOD CELL COUNT INCREASED [None]
